FAERS Safety Report 23242232 (Version 5)
Quarter: 2025Q2

REPORT INFORMATION
  Report Type: Report from Study
  Country: CA (occurrence: CA)
  Receive Date: 20231129
  Receipt Date: 20250624
  Transmission Date: 20250716
  Serious: Yes (Other)
  Sender: BIOCON
  Company Number: CA-MYLANLABS-2023M1106279

PATIENT

DRUGS (6)
  1. HULIO [Suspect]
     Active Substance: ADALIMUMAB-FKJP
     Indication: Crohn^s disease
     Dosage: 40 MILLIGRAM, QW (WEEKLY)
     Route: 058
     Dates: start: 20230529
  2. HULIO [Suspect]
     Active Substance: ADALIMUMAB-FKJP
     Route: 058
  3. HULIO [Suspect]
     Active Substance: ADALIMUMAB-FKJP
     Route: 058
  4. HULIO [Suspect]
     Active Substance: ADALIMUMAB-FKJP
     Route: 058
  5. HULIO [Suspect]
     Active Substance: ADALIMUMAB-FKJP
     Dosage: 40 MILLIGRAM, QWEEK
     Route: 058
  6. FERAMAX [Concomitant]
     Active Substance: IRON\POLYSACCHARIDES
     Indication: Iron deficiency
     Route: 065

REACTIONS (8)
  - Crohn^s disease [Unknown]
  - Surgery [Unknown]
  - Haematochezia [Unknown]
  - Stoma prolapse [Not Recovered/Not Resolved]
  - Stoma site discharge [Not Recovered/Not Resolved]
  - C-reactive protein abnormal [Unknown]
  - Product dose omission issue [Unknown]
  - Off label use [Unknown]
